FAERS Safety Report 7178920-7 (Version None)
Quarter: 2010Q4

REPORT INFORMATION
  Report Type: 
  Country: None (occurrence: None)
  Receive Date: 20101217
  Receipt Date: 20101217
  Transmission Date: 20110411
  Serious: No
  Sender: FDA-Public Use
  Company Number: None

PATIENT
  Age: 62 Year
  Sex: Male
  Weight: 90.7194 kg

DRUGS (1)
  1. PROPOXYPHENE HYDROCHLORIDE [Suspect]
     Indication: PAIN MANAGEMENT
     Dosage: 650MG 4 TIMES A DAY PO
     Route: 048

REACTIONS (2)
  - DIZZINESS [None]
  - MYOCARDIAL INFARCTION [None]
